FAERS Safety Report 10671569 (Version 1)
Quarter: 2014Q4

REPORT INFORMATION
  Report Type: Spontaneous
  Country: US (occurrence: None)
  Receive Date: 20141222
  Receipt Date: 20141222
  Transmission Date: 20150529
  Serious: Yes (Hospitalization, Other)
  Sender: FDA-Public Use
  Company Number: None

PATIENT
  Age: 72 Year
  Sex: Male

DRUGS (1)
  1. ENOXAPARIN SODIUM 100 MG WATSON NDC62037-863-20 [Suspect]
     Active Substance: ENOXAPARIN SODIUM
     Indication: SURGERY
     Dosage: 2 SHOTS A DAY, TWICE DAILY, STOMACH
     Dates: start: 20140630, end: 20140708

REACTIONS (4)
  - Urinary incontinence [None]
  - Monoplegia [None]
  - Incontinence [None]
  - Fall [None]

NARRATIVE: CASE EVENT DATE: 20140709
